FAERS Safety Report 7323227-8 (Version None)
Quarter: 2011Q1

REPORT INFORMATION
  Report Type: 
  Country: None (occurrence: None)
  Receive Date: 20110301
  Receipt Date: 20110223
  Transmission Date: 20110831
  Serious: Yes (Hospitalization, Other)
  Sender: FDA-Public Use
  Company Number: CA-GENZYME-THYM-1002318

PATIENT
  Age: 26 Year
  Sex: Female

DRUGS (10)
  1. METHYLPREDNISOLONE [Concomitant]
     Indication: PROPHYLAXIS AGAINST TRANSPLANT REJECTION
     Dosage: UNK
     Dates: start: 20060101, end: 20060101
  2. THYMOGLOBULIN [Suspect]
     Indication: KIDNEY TRANSPLANT REJECTION
     Dosage: 7.5 MG/KG, UNK
     Route: 042
     Dates: start: 20060101, end: 20060101
  3. EPOGEN [Concomitant]
     Indication: PRODUCT USED FOR UNKNOWN INDICATION
     Dosage: UNK
     Dates: start: 20060101, end: 20060101
  4. SIROLIMUS [Concomitant]
     Indication: IMMUNOSUPPRESSION
     Dosage: 5 MG, QD
  5. ENALAPRIL [Concomitant]
     Indication: PRODUCT USED FOR UNKNOWN INDICATION
     Dosage: UNK
     Dates: start: 20060101, end: 20060101
  6. THYMOGLOBULIN [Suspect]
     Indication: PROPHYLAXIS AGAINST TRANSPLANT REJECTION
     Dosage: 5 MG/KG, UNK
     Route: 042
     Dates: start: 20060101, end: 20060101
  7. TACROLIMUS [Concomitant]
     Indication: IMMUNOSUPPRESSION
  8. IRON [Concomitant]
     Indication: PRODUCT USED FOR UNKNOWN INDICATION
     Dosage: UNK
     Route: 048
     Dates: start: 20060101, end: 20060101
  9. MYCOPHENOLATE MOFETIL [Concomitant]
     Indication: IMMUNOSUPPRESSION
  10. PREDNISOLONE [Concomitant]
     Indication: IMMUNOSUPPRESSION
     Dosage: 5 MG, QD

REACTIONS (5)
  - COMPLICATIONS OF TRANSPLANTED KIDNEY [None]
  - RENAL IMPAIRMENT [None]
  - SCLEROSING ENCAPSULATING PERITONITIS [None]
  - NEPHROCALCINOSIS [None]
  - KIDNEY TRANSPLANT REJECTION [None]
